FAERS Safety Report 8419100-4 (Version None)
Quarter: 2012Q2

REPORT INFORMATION
  Report Type: 
  Country: None (occurrence: None)
  Receive Date: 20120607
  Receipt Date: 20120605
  Transmission Date: 20120825
  Serious: Yes (Hospitalization, Other)
  Sender: FDA-Public Use
  Company Number: PHEH2006US10940

PATIENT
  Sex: Male
  Weight: 68.027 kg

DRUGS (59)
  1. PROSCAR [Concomitant]
  2. DARVOCET-N 50 [Concomitant]
  3. CURCUMEN [Concomitant]
  4. AVODART [Concomitant]
  5. AREDIA [Suspect]
     Dosage: 90 MG, QMO
     Dates: start: 20030727, end: 20040428
  6. AREDIA [Suspect]
     Dosage: 90 MG, Q3-4MOS
     Dates: start: 20060215
  7. KETOCONAZOLE [Concomitant]
  8. CYTOXAN [Concomitant]
  9. NEUMEGA [Concomitant]
  10. NORCO [Concomitant]
  11. METFORMIN HCL [Concomitant]
  12. AREDIA [Suspect]
     Dosage: 90 MG,Q3MOS
     Route: 042
     Dates: start: 20020614, end: 20021217
  13. INTRON A [Concomitant]
  14. REVLIMID [Concomitant]
  15. DILAUDID [Concomitant]
  16. ROCALTROL [Concomitant]
  17. CHLORHEXIDINE GLUCONATE [Concomitant]
  18. AREDIA [Suspect]
     Dosage: 30 MG, ONCE/SINGLE
     Dates: start: 20030320, end: 20030320
  19. TESTOSTERONE [Concomitant]
  20. LIPITOR [Concomitant]
     Dosage: 40 MG, QD
  21. HYDROCORTISONE [Concomitant]
     Dates: start: 20030513, end: 20040217
  22. ROCEPHIN [Concomitant]
  23. VITAMIN B6 [Concomitant]
  24. ALDACTONE [Concomitant]
  25. ARANESP [Concomitant]
  26. LOVAZA [Concomitant]
  27. NIASPAN [Concomitant]
  28. TAXOTERE [Concomitant]
  29. DECADRON #1 [Concomitant]
     Indication: PREMEDICATION
     Dosage: 4 MG, UNK
     Route: 042
     Dates: start: 20020614
  30. GABAPENTIN [Concomitant]
  31. CIPRO [Concomitant]
  32. VITAMIN E [Concomitant]
  33. DIOVAN [Concomitant]
  34. KEFLEX [Concomitant]
  35. ASPIRIN [Concomitant]
  36. CELEBREX [Concomitant]
  37. ZYPREXA [Concomitant]
  38. PROVIGIL [Concomitant]
  39. AREDIA [Suspect]
     Dosage: 90 MG, Q2MO
     Dates: start: 20040614, end: 20051109
  40. NEXIUM [Concomitant]
  41. ANDROGEL [Concomitant]
  42. ESTINYL [Concomitant]
  43. LUPRON [Concomitant]
  44. SANDOSTATIN [Concomitant]
  45. EMCYT [Concomitant]
  46. ASPIRIN [Concomitant]
  47. THALIDOMIDE [Suspect]
     Dates: start: 20020601
  48. ANTIHYPERTENSIVE DRUGS [Concomitant]
  49. AVASTIN [Concomitant]
     Dosage: 700 MG, Q3W
     Route: 042
  50. DIOVAN HCT [Concomitant]
  51. LEUKINE [Concomitant]
  52. EPOGEN [Concomitant]
  53. CARBOPLATIN [Concomitant]
  54. GEMZAR [Concomitant]
  55. COUMADIN [Concomitant]
  56. ENTEX CAP [Concomitant]
  57. LASIX [Concomitant]
  58. VANCOMYCIN [Concomitant]
  59. TARCEVA [Concomitant]

REACTIONS (93)
  - OSTEONECROSIS OF JAW [None]
  - BONE LOSS [None]
  - TOOTHACHE [None]
  - SALIVARY GLAND PAIN [None]
  - ANAEMIA [None]
  - DECREASED APPETITE [None]
  - SINUS DISORDER [None]
  - TOOTH FRACTURE [None]
  - MUCOSAL INFLAMMATION [None]
  - MENTAL IMPAIRMENT [None]
  - CEREBRAL INFARCTION [None]
  - DYSPNOEA [None]
  - CELLULITIS [None]
  - PAIN IN JAW [None]
  - OSTEOMYELITIS [None]
  - LYMPHADENOPATHY [None]
  - INJURY [None]
  - CHOLELITHIASIS [None]
  - HEAT EXHAUSTION [None]
  - CEREBROVASCULAR ACCIDENT [None]
  - DYSARTHRIA [None]
  - NEUTROPENIA [None]
  - LEUKOPENIA [None]
  - THROMBOCYTOPENIA [None]
  - HYPERLIPIDAEMIA [None]
  - URINARY HESITATION [None]
  - LOSS OF CONSCIOUSNESS [None]
  - GASTRIC ULCER [None]
  - BRONCHITIS [None]
  - HYPOAESTHESIA [None]
  - RENAL CYST [None]
  - PAIN [None]
  - GINGIVAL PAIN [None]
  - ABDOMINAL DISCOMFORT [None]
  - PANCYTOPENIA [None]
  - DERMAL CYST [None]
  - APHASIA [None]
  - CEREBRAL ATROPHY [None]
  - ENTEROCOLITIS [None]
  - JOINT SWELLING [None]
  - CERUMEN IMPACTION [None]
  - LOOSE TOOTH [None]
  - HYPOPHAGIA [None]
  - DISABILITY [None]
  - PULMONARY CONGESTION [None]
  - ENCEPHALOMALACIA [None]
  - HIATUS HERNIA [None]
  - HEPATIC CYST [None]
  - AMNESIA [None]
  - WEIGHT DECREASED [None]
  - HYPOGEUSIA [None]
  - HYPOACUSIS [None]
  - NEUROPATHY PERIPHERAL [None]
  - ANXIETY [None]
  - SINUSITIS [None]
  - BACK PAIN [None]
  - PLEURAL EFFUSION [None]
  - TENDONITIS [None]
  - MUSCLE SPASMS [None]
  - SPINAL HAEMANGIOMA [None]
  - DIARRHOEA [None]
  - HYPERTENSION [None]
  - ORAL INFECTION [None]
  - TRISMUS [None]
  - BONE DISORDER [None]
  - ANHEDONIA [None]
  - ORAL PAIN [None]
  - GINGIVAL RECESSION [None]
  - PAROTID GLAND ENLARGEMENT [None]
  - NASAL ODOUR [None]
  - TRANSIENT ISCHAEMIC ATTACK [None]
  - MUSCLE STRAIN [None]
  - BOWEL MOVEMENT IRREGULARITY [None]
  - GLIOSIS [None]
  - PANCREATIC CYST [None]
  - IMPAIRED HEALING [None]
  - OTITIS MEDIA ACUTE [None]
  - PRIMARY SEQUESTRUM [None]
  - PERIODONTAL DISEASE [None]
  - SPINAL OSTEOARTHRITIS [None]
  - OSTEOPENIA [None]
  - NEOPLASM MALIGNANT [None]
  - PRODUCTIVE COUGH [None]
  - DIVERTICULUM [None]
  - GINGIVITIS [None]
  - GINGIVAL BLEEDING [None]
  - GINGIVAL INFECTION [None]
  - AORTIC ARTERIOSCLEROSIS [None]
  - SPONDYLOPATHY TRAUMATIC [None]
  - NEPHROLITHIASIS [None]
  - SOMNOLENCE [None]
  - ABDOMINAL PAIN [None]
  - CHEST PAIN [None]
